FAERS Safety Report 11656676 (Version 3)
Quarter: 2015Q4

REPORT INFORMATION
  Report Type: Spontaneous
  Country: US (occurrence: US)
  Receive Date: 20151023
  Receipt Date: 20151218
  Transmission Date: 20160304
  Serious: Yes (Other)
  Sender: FDA-Public Use
  Company Number: US-GLAXOSMITHKLINE-US2015148961

PATIENT
  Age: 72 Year
  Sex: Female

DRUGS (2)
  1. ADVAIR DISKUS [Suspect]
     Active Substance: FLUTICASONE PROPIONATE\SALMETEROL XINAFOATE
     Indication: ASTHMA
     Dosage: 1 PUFF(S), BID
     Route: 055
  2. ADVAIR DISKUS [Suspect]
     Active Substance: FLUTICASONE PROPIONATE\SALMETEROL XINAFOATE
     Dosage: UNK, PRN

REACTIONS (6)
  - Cataract operation [Recovering/Resolving]
  - Eye operation [Unknown]
  - Inappropriate schedule of drug administration [Not Recovered/Not Resolved]
  - Intentional product use issue [Not Recovered/Not Resolved]
  - Lower respiratory tract congestion [Not Recovered/Not Resolved]
  - Glaucoma [Recovering/Resolving]

NARRATIVE: CASE EVENT DATE: 201508
